FAERS Safety Report 5669140-3 (Version None)
Quarter: 2008Q1

REPORT INFORMATION
  Report Type: 
  Country: None (occurrence: None)
  Receive Date: 20080317
  Receipt Date: 20080303
  Transmission Date: 20080703
  Serious: Yes (Other)
  Sender: FDA-Public Use
  Company Number: US-AMGEN-STX268008

PATIENT
  Sex: Female

DRUGS (1)
  1. ENBREL [Suspect]
     Indication: RHEUMATOID ARTHRITIS
     Route: 058
     Dates: start: 20061215

REACTIONS (5)
  - CARDIAC VALVE DISEASE [None]
  - CORONARY ARTERY REOCCLUSION [None]
  - INJECTION SITE BRUISING [None]
  - INJECTION SITE PAIN [None]
  - MYALGIA [None]
